FAERS Safety Report 9746422 (Version 1)
Quarter: 2013Q4

REPORT INFORMATION
  Report Type: Spontaneous
  Country: GR (occurrence: GR)
  Receive Date: 20131211
  Receipt Date: 20131211
  Transmission Date: 20140711
  Serious: Yes (Hospitalization, Other)
  Sender: FDA-Public Use
  Company Number: GR-VIIV HEALTHCARE LIMITED-B0952185A

PATIENT
  Age: 65 Year
  Sex: Male

DRUGS (3)
  1. TRIZIVIR [Suspect]
     Indication: HIV INFECTION
     Route: 065
  2. SOTALOL [Suspect]
     Indication: PRODUCT USED FOR UNKNOWN INDICATION
  3. KALETRA [Suspect]
     Indication: HIV INFECTION

REACTIONS (4)
  - Acute myocardial infarction [Recovered/Resolved]
  - Electrocardiogram QT prolonged [Unknown]
  - Ventricular tachycardia [Unknown]
  - Bradycardia [Unknown]
